FAERS Safety Report 6965434-X (Version None)
Quarter: 2010Q3

REPORT INFORMATION
  Report Type: 
  Country: None (occurrence: None)
  Receive Date: 20100903
  Receipt Date: 20100825
  Transmission Date: 20110219
  Serious: Yes (Hospitalization)
  Sender: FDA-Public Use
  Company Number: A0879151A

PATIENT
  Age: 45 Year
  Sex: Female

DRUGS (2)
  1. AVANDIA [Suspect]
     Dosage: 2MG TWICE PER DAY
     Dates: start: 20060101, end: 20090101
  2. AVANDAMET [Suspect]

REACTIONS (1)
  - ANGINA PECTORIS [None]
